FAERS Safety Report 7821115-1 (Version None)
Quarter: 2011Q4

REPORT INFORMATION
  Report Type: 
  Country: None (occurrence: None)
  Receive Date: 20111018
  Receipt Date: 20111014
  Transmission Date: 20120403
  Serious: No
  Sender: FDA-Public Use
  Company Number: US-PFIZER INC-2011232111

PATIENT
  Sex: Female
  Weight: 47.619 kg

DRUGS (6)
  1. ADVIL PM [Suspect]
     Indication: SLEEP DISORDER
     Dosage: TWO TABLETS AT NIGHT
     Route: 048
     Dates: start: 20110926, end: 20110927
  2. PREDNISONE [Concomitant]
     Indication: EYE DISORDER
     Dosage: UNK
  3. LIPITOR [Concomitant]
     Indication: BLOOD CHOLESTEROL INCREASED
     Dosage: 10 MG, DAILY
  4. MURO 128 [Concomitant]
     Indication: EYE DISORDER
     Dosage: UNK
  5. IBUPROFEN (ADVIL) [Concomitant]
     Indication: HEADACHE
     Dosage: UNK, AS NEEDED
  6. FOSAMAX [Concomitant]
     Indication: OSTEOPOROSIS
     Dosage: 70 MG, WEEKLY

REACTIONS (1)
  - INSOMNIA [None]
